FAERS Safety Report 13528822 (Version 1)
Quarter: 2017Q2

REPORT INFORMATION
  Report Type: Spontaneous
  Country: US (occurrence: US)
  Receive Date: 20170509
  Receipt Date: 20170509
  Transmission Date: 20170830
  Serious: Yes (Other)
  Sender: FDA-Public Use
  Company Number: US-SILVERGATE PHARMACEUTICALS, INC.-2017SIL00004

PATIENT
  Age: 14 Year
  Weight: 17 kg

DRUGS (5)
  1. EPANED [Suspect]
     Active Substance: ENALAPRIL MALEATE
     Indication: NEPHROCALCINOSIS
  2. VITAMIN D [Concomitant]
     Active Substance: CHOLECALCIFEROL
     Dosage: 1200 IU, 1X/DAY
  3. EPANED [Suspect]
     Active Substance: ENALAPRIL MALEATE
     Indication: HEART DISEASE CONGENITAL
     Dosage: 2 MG, 2X/DAY
     Route: 048
     Dates: start: 20170407, end: 20170412
  4. EPANED [Suspect]
     Active Substance: ENALAPRIL MALEATE
     Indication: RENAL DYSPLASIA
  5. EPANED [Suspect]
     Active Substance: ENALAPRIL MALEATE
     Indication: BLOOD PRESSURE MANAGEMENT

REACTIONS (2)
  - Gastrointestinal pain [Recovered/Resolved]
  - Intestinal angioedema [Recovered/Resolved]

NARRATIVE: CASE EVENT DATE: 20170412
